FAERS Safety Report 15551597 (Version 3)
Quarter: 2019Q4

REPORT INFORMATION
  Report Type: Report from Study
  Country: US (occurrence: US)
  Receive Date: 20181025
  Receipt Date: 20191015
  Transmission Date: 20200122
  Serious: Yes (Other)
  Sender: FDA-Public Use
  Company Number: US-SA-2018SA271188

PATIENT
  Age: 44 Year
  Sex: Female

DRUGS (20)
  1. ALEMTUZUMAB [Suspect]
     Active Substance: ALEMTUZUMAB
     Indication: MULTIPLE SCLEROSIS
     Dosage: 12 MG, QD
     Route: 041
     Dates: start: 20190918, end: 20190920
  2. FLAVOXATE HYDROCHLORIDE. [Concomitant]
     Active Substance: FLAVOXATE HYDROCHLORIDE
     Indication: BLADDER SPASM
     Dosage: 1-2 ORAL TID AS NEEDED
     Route: 048
     Dates: start: 20180517
  3. MYRBETRIQ [Concomitant]
     Active Substance: MIRABEGRON
     Dosage: 1 DF, QD
     Route: 048
  4. ZANTAC [Concomitant]
     Active Substance: RANITIDINE HYDROCHLORIDE
  5. TYLENOL [Concomitant]
     Active Substance: ACETAMINOPHEN
  6. ALEMTUZUMAB [Suspect]
     Active Substance: ALEMTUZUMAB
     Dosage: 12 MG, QD
     Route: 041
     Dates: start: 20180917, end: 20180920
  7. IBUPROFEN. [Concomitant]
     Active Substance: IBUPROFEN
     Dosage: 1 DF, TID
     Route: 048
  8. BENADRYL [Concomitant]
     Active Substance: DIPHENHYDRAMINE HYDROCHLORIDE
  9. TECFIDERA [Concomitant]
     Active Substance: DIMETHYL FUMARATE
     Dosage: 1 DF, BID
     Route: 048
     Dates: start: 20160112
  10. VALACYCLOVIR HCL [Concomitant]
     Active Substance: VALACYCLOVIR HYDROCHLORIDE
     Dosage: 1 DF, QD
     Route: 048
     Dates: start: 20180801
  11. BACLOFEN. [Concomitant]
     Active Substance: BACLOFEN
     Dosage: 1 TABLET TWICE A DAY AND 2 TABLETS AT BEDTIME
  12. VENLAFAXINE HCL [Concomitant]
     Active Substance: VENLAFAXINE HYDROCHLORIDE
     Dosage: 2 DF, BID
     Route: 048
  13. ZYRTEC [Concomitant]
     Active Substance: CETIRIZINE HYDROCHLORIDE
  14. ALEMTUZUMAB [Suspect]
     Active Substance: ALEMTUZUMAB
     Dosage: 12 MG, QD
     Route: 041
     Dates: start: 20180924, end: 20180924
  15. ALPRAZOLAM. [Concomitant]
     Active Substance: ALPRAZOLAM
     Dosage: 1/2 TABLET TWICE DAILY AS NEEDED
  16. FLUOXETINE HYDROCHLORIDE. [Concomitant]
     Active Substance: FLUOXETINE HYDROCHLORIDE
     Dosage: 10 MG QD
     Route: 048
     Dates: start: 20180808
  17. TOPIRAMATE. [Concomitant]
     Active Substance: TOPIRAMATE
     Dosage: 3 DF, QD
     Dates: start: 19000101
  18. VENLAFAXINE HCL [Concomitant]
     Active Substance: VENLAFAXINE HYDROCHLORIDE
     Dosage: UNK
     Route: 048
     Dates: start: 20180831
  19. VITAMIN D3 [Concomitant]
     Active Substance: CHOLECALCIFEROL
     Route: 048
  20. ZOMIG [Concomitant]
     Active Substance: ZOLMITRIPTAN
     Dosage: 1 DF, PRN
     Route: 048

REACTIONS (7)
  - Contusion [Not Recovered/Not Resolved]
  - Oral contusion [Unknown]
  - Haemorrhagic disorder [Not Recovered/Not Resolved]
  - Petechiae [Unknown]
  - Blood test abnormal [Unknown]
  - Cough [Not Recovered/Not Resolved]
  - Increased tendency to bruise [Unknown]

NARRATIVE: CASE EVENT DATE: 201909
